FAERS Safety Report 17531951 (Version 1)
Quarter: 2020Q1

REPORT INFORMATION
  Report Type: Spontaneous
  Country: AU (occurrence: AU)
  Receive Date: 20200311
  Receipt Date: 20200311
  Transmission Date: 20200409
  Serious: Yes (Hospitalization)
  Sender: FDA-Public Use
  Company Number: AU-VALIDUS PHARMACEUTICALS LLC-AU-2020VAL000176

PATIENT

DRUGS (1)
  1. ROCALTROL [Suspect]
     Active Substance: CALCITRIOL
     Indication: PRODUCT USED FOR UNKNOWN INDICATION
     Dosage: UNK
     Route: 065

REACTIONS (8)
  - Coordination abnormal [Unknown]
  - Hypoparathyroidism [Unknown]
  - Bone pain [Unknown]
  - Dry mouth [Unknown]
  - Headache [Unknown]
  - Hyperhidrosis [Unknown]
  - Vomiting [Unknown]
  - Urinary tract infection [Unknown]
